FAERS Safety Report 17168651 (Version 1)
Quarter: 2019Q4

REPORT INFORMATION
  Report Type: Spontaneous
  Country: US (occurrence: US)
  Receive Date: 20191125
  Receipt Date: 20191125
  Transmission Date: 20200122
  Serious: Yes (Hospitalization)
  Sender: FDA-Public Use
  Company Number: None

PATIENT
  Age: 23 Year
  Sex: Female

DRUGS (1)
  1. STELARA [Suspect]
     Active Substance: USTEKINUMAB
     Indication: CROHN^S DISEASE
     Dosage: ?          OTHER FREQUENCY:EVERY  Q 8 WEEKS;?
     Route: 058
     Dates: start: 20190829

REACTIONS (5)
  - Abdominal pain [None]
  - Diarrhoea [None]
  - Condition aggravated [None]
  - Colon operation [None]
  - Therapy cessation [None]

NARRATIVE: CASE EVENT DATE: 201908
